FAERS Safety Report 25842571 (Version 2)
Quarter: 2025Q4

REPORT INFORMATION
  Report Type: Spontaneous
  Country: US (occurrence: US)
  Receive Date: 20250924
  Receipt Date: 20251006
  Transmission Date: 20260117
  Serious: Yes (Hospitalization, Other)
  Sender: MYLAN
  Company Number: US-MYLANLABS-2025M1080061

PATIENT
  Sex: Female

DRUGS (2)
  1. LEVOTHYROXINE SODIUM [Suspect]
     Active Substance: LEVOTHYROXINE SODIUM
     Indication: Thyroid cancer
     Dosage: 100 MICROGRAM, QD (ONCE DAILY)
     Dates: start: 2012, end: 202508
  2. LEVOTHYROXINE SODIUM [Suspect]
     Active Substance: LEVOTHYROXINE SODIUM
     Indication: Thyroid cancer
     Dosage: 112 MICROGRAM, AM (ONE PILL EVERY MORNING)
     Dates: start: 2012, end: 202508

REACTIONS (6)
  - Hospitalisation [Unknown]
  - Arrhythmia [Unknown]
  - Palpitations [Unknown]
  - Recalled product administered [Unknown]
  - Drug effect less than expected [Unknown]
  - Suspected product quality issue [Unknown]
